FAERS Safety Report 7269813-5 (Version None)
Quarter: 2011Q1

REPORT INFORMATION
  Report Type: 
  Country: None (occurrence: None)
  Receive Date: 20110202
  Receipt Date: 20110125
  Transmission Date: 20110831
  Serious: Yes (Death)
  Sender: FDA-Public Use
  Company Number: DE-BAXTER-2010BH029607

PATIENT
  Sex: Female

DRUGS (3)
  1. DIANEAL PD-1 [Suspect]
     Indication: PERITONEAL DIALYSIS
     Route: 033
     Dates: start: 20090417
  2. DIANEAL PD-1 [Suspect]
     Indication: RENAL DISORDER
     Route: 033
     Dates: start: 20090417
  3. DIANEAL PD-1 [Suspect]
     Indication: RENAL FAILURE CHRONIC
     Route: 033
     Dates: start: 20090417

REACTIONS (1)
  - DEATH [None]
